FAERS Safety Report 20144439 (Version 1)
Quarter: 2021Q4

REPORT INFORMATION
  Report Type: Spontaneous
  Country: US (occurrence: None)
  Receive Date: 20211202
  Receipt Date: 20211202
  Transmission Date: 20220303
  Serious: No
  Sender: FDA-Public Use
  Company Number: None

PATIENT
  Age: 60 Year
  Sex: Male

DRUGS (1)
  1. TRAZODONE HYDROCHLORIDE [Suspect]
     Active Substance: TRAZODONE HYDROCHLORIDE
     Dosage: OTHER FREQUENCY : HS;?
     Route: 048
     Dates: start: 20210914, end: 20210914

REACTIONS (1)
  - Angioedema [None]

NARRATIVE: CASE EVENT DATE: 20210914
